FAERS Safety Report 9406352 (Version 2)
Quarter: 2013Q4

REPORT INFORMATION
  Report Type: Report from Study
  Country: DE (occurrence: DE)
  Receive Date: 20130717
  Receipt Date: 20131022
  Transmission Date: 20140711
  Serious: Yes (Hospitalization)
  Sender: FDA-Public Use
  Company Number: DE-ROCHE-1249728

PATIENT
  Age: 42 Year
  Sex: Female
  Weight: 60 kg

DRUGS (3)
  1. BEVACIZUMAB [Suspect]
     Indication: OVARIAN CANCER
     Dosage: DATE OF LAST DOSE PRIOR TO SAE 04/JUL/2013.
     Route: 042
     Dates: start: 20130704
  2. PACLITAXEL [Suspect]
     Indication: OVARIAN CANCER
     Dosage: DATE OF LAST DOSE PRIOR TO SAE 04/JUL/2013.
     Route: 042
     Dates: start: 20130524
  3. CARBOPLATIN [Suspect]
     Indication: OVARIAN CANCER
     Dosage: AUC 5, DATE OF LAST DOSE PRIOR TO SAE 04/JUL/2013.
     Route: 042
     Dates: start: 20130524

REACTIONS (1)
  - Ascites [Recovered/Resolved]
